FAERS Safety Report 8181725 (Version 6)
Quarter: 2012Q4

REPORT INFORMATION
  Report Type: 
  Country: JP (occurrence: JP)
  Receive Date: 20111014
  Receipt Date: 20121003
  Transmission Date: 20130627
  Serious: Yes (Death, Hospitalization, Other)
  Sender: FDA-Public Use
  Company Number: JP-TYCO HEALTHCARE/MALLINCKRODT-T201102017

PATIENT
  Age: 41 Year
  Sex: Female
  Weight: 53.2 kg

DRUGS (25)
  1. METHADONE [Suspect]
     Indication: CANCER PAIN
     Dosage: 10 mg, tid
     Route: 048
     Dates: start: 20110202, end: 20110329
  2. METHADONE [Suspect]
     Dosage: 15 mg, tid
     Route: 048
     Dates: start: 20110330, end: 20110510
  3. METHADONE [Suspect]
     Dosage: 20 mg tid
     Route: 048
     Dates: start: 20110511, end: 20110601
  4. METHADONE [Suspect]
     Dosage: 25 mg tid
     Route: 048
     Dates: start: 20110602, end: 20110802
  5. METHADONE [Suspect]
     Dosage: 20 mg tid
     Route: 048
     Dates: start: 20110803, end: 20111004
  6. METHADONE [Suspect]
     Dosage: 25 mg, tid
     Route: 048
     Dates: start: 20111005, end: 20120507
  7. METHADONE [Suspect]
     Dosage: 20 mg, tid
     Route: 048
     Dates: start: 20120508, end: 20120831
  8. METHADONE [Suspect]
     Dosage: 25 mg, tid
     Route: 048
     Dates: start: 20120901, end: 20120916
  9. OXYNORM [Concomitant]
     Indication: PAIN
     Dosage: 5 mg, prn
     Dates: end: 20120916
  10. MOHRUS [Concomitant]
     Indication: CANCER PAIN
     Dosage: 20-40 mg/time as needed
     Dates: end: 20120919
  11. KAIBEEL C [Concomitant]
     Indication: CONSTIPATION
     Dosage: 3 tab/time as needed
     Dates: start: 20110204, end: 20120915
  12. MAGNESIUM OXIDE [Concomitant]
     Indication: CONSTIPATION
     Dosage: 1 g/time as needed
     Dates: start: 20110204, end: 20120915
  13. MYSLEE [Concomitant]
     Indication: INSOMNIA
     Dosage: 10 mg/time as needed
     Dates: end: 20120915
  14. RINDERON-VG [Concomitant]
     Dosage: Adequate dose
     Dates: end: 20111031
  15. HIRUDOID                           /00723701/ [Concomitant]
     Dosage: Adequate dose
     Dates: end: 20111031
  16. LOCOID                             /00028605/ [Concomitant]
     Dosage: Adequate dose
  17. ZOMETA [Concomitant]
     Dosage: 4 mg once/six weeks
     Route: 042
     Dates: end: 20120827
  18. SALINE                             /00075401/ [Concomitant]
     Dosage: 100 ml once/six weeks
     Dates: end: 20120827
  19. LOXONIN                            /00890701/ [Concomitant]
     Indication: CANCER PAIN
     Dosage: 60 mg/time as needed
     Dates: start: 20110707, end: 20120831
  20. REBAMIPIDE [Concomitant]
     Indication: GASTRITIS PROPHYLAXIS
     Dosage: 100 mg/time as needed
     Dates: start: 20110928, end: 20120321
  21. HYALEIN [Concomitant]
     Dosage: Adequate dose
     Dates: end: 20120609
  22. ARTIFICIAL TEARS                   /00445101/ [Concomitant]
     Dosage: Adequate dose
     Dates: start: 20110928, end: 20120609
  23. HEPARIN NA LOCK [Concomitant]
     Indication: ANTICOAGULANT THERAPY
     Dosage: 10 units/time as needed
     Dates: start: 20110614, end: 20120915
  24. XYLOCAINE                          /00033401/ [Concomitant]
     Indication: STOMATITIS
     Dosage: Adequate dose as gargle
     Dates: start: 20110809, end: 20120322
  25. HACHIAZULE                         /00523101/ [Concomitant]
     Indication: STOMATITIS
     Dosage: Adequate dose for gargle
     Dates: start: 20110809, end: 20120322

REACTIONS (7)
  - Metastases to bone [Fatal]
  - Pain [Not Recovered/Not Resolved]
  - Metastases to liver [Unknown]
  - Hypoaesthesia [Unknown]
  - Febrile neutropenia [Unknown]
  - Drug therapy changed [Recovered/Resolved]
  - Somnolence [Unknown]
